FAERS Safety Report 14847365 (Version 2)
Quarter: 2018Q2

REPORT INFORMATION
  Report Type: Other
  Country: US (occurrence: US)
  Receive Date: 20180504
  Receipt Date: 20180518
  Transmission Date: 20180711
  Serious: No
  Sender: FDA-Public Use
  Company Number: US-SUNOVION-2018SUN001820

PATIENT
  Age: 50 Year
  Sex: Male

DRUGS (2)
  1. APTIOM [Suspect]
     Active Substance: ESLICARBAZEPINE ACETATE
     Dosage: 1600 MG, QD
     Route: 048
  2. APTIOM [Suspect]
     Active Substance: ESLICARBAZEPINE ACETATE
     Indication: SEIZURE
     Dosage: 1600 MG, BID
     Route: 048

REACTIONS (4)
  - Ataxia [Recovered/Resolved]
  - Nausea [Recovered/Resolved]
  - Overdose [Unknown]
  - Dizziness [Recovered/Resolved]
